FAERS Safety Report 5624468-8 (Version None)
Quarter: 2008Q1

REPORT INFORMATION
  Report Type: 
  Country: None (occurrence: None)
  Receive Date: 20080213
  Receipt Date: 20080130
  Transmission Date: 20080703
  Serious: Yes (Hospitalization)
  Sender: FDA-Public Use
  Company Number: US-AMGEN-STX263148

PATIENT
  Sex: Male

DRUGS (3)
  1. ENBREL [Suspect]
     Indication: RHEUMATOID ARTHRITIS
     Route: 058
     Dates: start: 20071125
  2. METHOTREXATE [Concomitant]
     Route: 065
     Dates: start: 20070101
  3. HYDROXYCHLOROQUINE SULFATE [Concomitant]
     Route: 065
     Dates: start: 20030101

REACTIONS (2)
  - HAND FRACTURE [None]
  - SKIN LACERATION [None]
